FAERS Safety Report 5262882-3 (Version None)
Quarter: 2007Q1

REPORT INFORMATION
  Report Type: 
  Country: None (occurrence: None)
  Receive Date: 20070308
  Receipt Date: 20070219
  Transmission Date: 20070707
  Serious: Yes (Other)
  Sender: FDA-Public Use
  Company Number: STI-2007-00085

PATIENT
  Age: 22 Year
  Sex: Female

DRUGS (2)
  1. 516A DUAC  (CLINDAMYCIN +BENZOYL PEROXIDE) (BENZOYL PEROXIDE W/CLINDAM [Suspect]
     Indication: ACNE
     Dosage: 1 DOSAGE FORM (1 DOSAGE FORM, AT NIGHT) TOPICAL
     Route: 061
     Dates: start: 20060701, end: 20061201
  2. MINOCYCLINE HCL [Concomitant]

REACTIONS (1)
  - NEUTROPENIA [None]
